FAERS Safety Report 4343180-9 (Version None)
Quarter: 2004Q2

REPORT INFORMATION
  Report Type: 
  Country: None (occurrence: None)
  Receive Date: 20040421
  Receipt Date: 20040412
  Transmission Date: 20050107
  Serious: Yes (Other)
  Sender: FDA-Public Use
  Company Number: PHBS2004CA04976

PATIENT
  Sex: Female

DRUGS (11)
  1. PAMIDRONATE DISODIUM [Suspect]
     Indication: MULTIPLE MYELOMA
     Route: 042
     Dates: start: 19960101
  2. GABAPENTIN [Concomitant]
     Route: 065
  3. PLAVIX [Concomitant]
     Route: 065
  4. VIOXX [Concomitant]
     Route: 065
  5. AMITRIPTYLINE HCL [Concomitant]
     Route: 065
  6. MORPHINE [Concomitant]
     Route: 065
  7. STEROIDS NOS [Concomitant]
     Route: 065
  8. CYCLOPHOSPHAMIDE [Concomitant]
     Route: 065
  9. PREDNISONE [Concomitant]
  10. VINCRISTINE + ADRIAMYCIN + DEXAMETHASONE [Concomitant]
     Dosage: 2 CYCLES
  11. AUTOLOGOUS PBST [Concomitant]

REACTIONS (12)
  - ABSCESS JAW [None]
  - ACTINOMYCOSIS [None]
  - BONE DISORDER [None]
  - CEREBROVASCULAR ACCIDENT [None]
  - DIZZINESS [None]
  - INTERVERTEBRAL DISC OPERATION [None]
  - MALIGNANT NEOPLASM PROGRESSION [None]
  - NERVE COMPRESSION [None]
  - OSTEOMYELITIS CHRONIC [None]
  - OSTEONECROSIS [None]
  - PAIN IN EXTREMITY [None]
  - PAIN IN JAW [None]
